FAERS Safety Report 9096936 (Version 2)
Quarter: 2013Q1

REPORT INFORMATION
  Report Type: Spontaneous
  Country: US (occurrence: None)
  Receive Date: 20130124
  Receipt Date: 20130213
  Transmission Date: 20140127
  Serious: Yes (Other)
  Sender: FDA-Public Use
  Company Number: 1102502

PATIENT
  Age: 36 Year
  Sex: Female

DRUGS (1)
  1. CLEAR EYES REDNESS RELIEF [Suspect]
     Indication: OFF LABEL USE
     Dates: start: 20121227

REACTIONS (5)
  - Corneal abrasion [None]
  - Chemical injury [None]
  - Ocular toxicity [None]
  - Keratitis [None]
  - Vision blurred [None]
